FAERS Safety Report 8310420-0 (Version None)
Quarter: 2012Q2

REPORT INFORMATION
  Report Type: 
  Country: None (occurrence: None)
  Receive Date: 20120425
  Receipt Date: 20120420
  Transmission Date: 20120825
  Serious: Yes (Other)
  Sender: FDA-Public Use
  Company Number: US-FRI-1000027468

PATIENT
  Sex: Male

DRUGS (11)
  1. VIIBRYD [Suspect]
     Dosage: 40 MG
     Route: 048
     Dates: start: 20111217, end: 20111230
  2. ZINC WITH VITAMIN D3 [Concomitant]
  3. MEN'S VITAMINS [Concomitant]
  4. LIPOFLAVONOID [Concomitant]
  5. SUPER B COMPLEX WITH VITAMIN C AND FOLIC ACID [Concomitant]
  6. VIIBRYD [Suspect]
     Indication: DEPRESSION
     Dosage: 10 MG
     Route: 048
     Dates: start: 20111202, end: 20111209
  7. VIIBRYD [Suspect]
     Dosage: 20 MG
     Route: 048
     Dates: start: 20111210, end: 20111216
  8. CALCIUM [Concomitant]
  9. CLONAZEPAM [Concomitant]
     Indication: ANXIETY
     Dosage: UP TO BID (TOOK 5 TIMES BETWEEN 12-DEC-2011 TO 19-DEC-2011
     Dates: start: 20111212
  10. GINKGO BILOBA [Concomitant]
  11. MAGNESIUM [Concomitant]

REACTIONS (9)
  - HALLUCINATION, AUDITORY [None]
  - VISUAL IMPAIRMENT [None]
  - ABNORMAL DREAMS [None]
  - TREMOR [None]
  - PARAESTHESIA [None]
  - HEADACHE [None]
  - SEIZURE LIKE PHENOMENA [None]
  - THINKING ABNORMAL [None]
  - TINNITUS [None]
